FAERS Safety Report 23997413 (Version 3)
Quarter: 2024Q2

REPORT INFORMATION
  Report Type: Spontaneous
  Country: JP (occurrence: JP)
  Receive Date: 20240621
  Receipt Date: 20240621
  Transmission Date: 20240715
  Serious: Yes (Hospitalization)
  Sender: FDA-Public Use
  Company Number: None

PATIENT
  Age: 69 Year
  Sex: Male

DRUGS (12)
  1. DOXORUBICIN [Suspect]
     Active Substance: DOXORUBICIN
     Indication: Follicular lymphoma stage IV
     Dosage: UNK (THREE COURSES)
     Route: 065
     Dates: start: 201810
  2. PREDNISOLONE [Suspect]
     Active Substance: PREDNISOLONE
     Indication: Follicular lymphoma stage IV
     Dosage: UNK (THREE COURSES)
     Route: 065
     Dates: start: 201810
  3. OBINUTUZUMAB [Suspect]
     Active Substance: OBINUTUZUMAB
     Indication: Follicular lymphoma stage IV
     Dosage: UNK (SIX COURSES)
     Route: 065
     Dates: start: 202011
  4. VINCRISTINE [Suspect]
     Active Substance: VINCRISTINE
     Indication: Follicular lymphoma stage IV
     Dosage: UNK (THREE COURSES)
     Route: 065
     Dates: start: 201810
  5. RITUXIMAB [Suspect]
     Active Substance: RITUXIMAB
     Indication: Follicular lymphoma stage IV
     Dosage: UNK (THREE COURSES)
     Route: 065
     Dates: start: 201810
  6. RITUXIMAB [Suspect]
     Active Substance: RITUXIMAB
     Indication: Follicular lymphoma stage IV
     Dosage: UNK (MAINTENANCE)
     Route: 065
  7. RITUXIMAB [Suspect]
     Active Substance: RITUXIMAB
     Dosage: UNK (INDUCTION THERAPY)
     Route: 065
     Dates: start: 2018, end: 2018
  8. RITUXIMAB [Suspect]
     Active Substance: RITUXIMAB
     Dosage: UNK (FOUR COURSES)
     Route: 065
     Dates: start: 201911
  9. CYCLOPHOSPHAMIDE [Suspect]
     Active Substance: CYCLOPHOSPHAMIDE
     Indication: Follicular lymphoma stage IV
     Dosage: UNK (THREE COURSES)
     Route: 065
     Dates: start: 201810
  10. BENDAMUSTINE [Suspect]
     Active Substance: BENDAMUSTINE
     Indication: Follicular lymphoma stage IV
     Dosage: INDUCTION THERAPY
     Route: 065
     Dates: start: 2018, end: 2018
  11. BENDAMUSTINE [Suspect]
     Active Substance: BENDAMUSTINE
     Dosage: UNK (FOUR COURSES)
     Route: 065
     Dates: start: 201911
  12. BENDAMUSTINE [Suspect]
     Active Substance: BENDAMUSTINE
     Indication: Follicular lymphoma stage IV
     Dosage: UNK (SIX COURSES)
     Route: 065
     Dates: start: 202011

REACTIONS (2)
  - Primary adrenal insufficiency [Recovered/Resolved]
  - Cytomegalovirus enteritis [Recovered/Resolved]

NARRATIVE: CASE EVENT DATE: 20210101
